FAERS Safety Report 13293074 (Version 1)
Quarter: 2017Q1

REPORT INFORMATION
  Report Type: Spontaneous
  Country: US (occurrence: US)
  Receive Date: 20170303
  Receipt Date: 20170303
  Transmission Date: 20170428
  Serious: Yes (Hospitalization)
  Sender: FDA-Public Use
  Company Number: US-JNJFOC-20161003093

PATIENT
  Age: 41 Year
  Sex: Female

DRUGS (1)
  1. XARELTO [Suspect]
     Active Substance: RIVAROXABAN
     Indication: PULMONARY EMBOLISM
     Route: 048
     Dates: start: 20140210, end: 20150330

REACTIONS (3)
  - Retroperitoneal haematoma [Recovering/Resolving]
  - Haematuria [Unknown]
  - Epistaxis [Unknown]

NARRATIVE: CASE EVENT DATE: 20140218
